FAERS Safety Report 4793464-5 (Version None)
Quarter: 2005Q4

REPORT INFORMATION
  Report Type: 
  Country: None (occurrence: None)
  Receive Date: 20051011
  Receipt Date: 20050330
  Transmission Date: 20060501
  Serious: No
  Sender: FDA-Public Use
  Company Number: US-BRISTOL-MYERS SQUIBB COMPANY-12918611

PATIENT
  Age: 25 Year
  Sex: Female

DRUGS (1)
  1. METFORMIN HCL XR TABS 500 MG [Suspect]
     Indication: DIABETES MELLITUS
     Route: 048
     Dates: start: 20050302

REACTIONS (1)
  - BLOOD GLUCOSE INCREASED [None]
